FAERS Safety Report 8869788 (Version 1)
Quarter: 2012Q4

REPORT INFORMATION
  Report Type: 
  Country: US (occurrence: US)
  Receive Date: 20121026
  Receipt Date: 20121026
  Transmission Date: 20130627
  Serious: No
  Sender: FDA-Public Use
  Company Number: US-AMGEN-USASP2012044168

PATIENT
  Age: 67 Year
  Sex: Female

DRUGS (11)
  1. ENBREL [Suspect]
     Indication: PRODUCT USED FOR UNKNOWN INDICATION
     Dosage: 25 mg, 2 times/wk
     Route: 058
  2. TOPROL [Concomitant]
     Dosage: 25 mg, UNK
  3. SIMVASTATIN [Concomitant]
     Dosage: 20 mg, UNK
  4. BONIVA [Concomitant]
     Dosage: 2.5 mg, UNK
  5. OMACOR                             /01403701/ [Concomitant]
     Dosage: 1 g, UNK
  6. CELEBREX [Concomitant]
     Dosage: 100 mg, UNK
  7. FISH OIL [Concomitant]
     Dosage: UNK
  8. VITAMIN D /00107901/ [Concomitant]
     Dosage: 1000 unit, UNK
  9. PREDNISONE [Concomitant]
     Dosage: 5 mg, UNK
  10. METHOTREXATE [Concomitant]
     Dosage: 25 mg/ml, UNK
  11. TAMOXIFEN [Concomitant]
     Dosage: 10 mg, UNK

REACTIONS (2)
  - Condition aggravated [Unknown]
  - Red blood cell sedimentation rate increased [Unknown]
